FAERS Safety Report 7517189-8 (Version None)
Quarter: 2011Q2

REPORT INFORMATION
  Report Type: 
  Country: None (occurrence: None)
  Receive Date: 20110601
  Receipt Date: 20110523
  Transmission Date: 20111010
  Serious: Yes (Hospitalization, Other)
  Sender: FDA-Public Use
  Company Number: US-ASTRAZENECA-2011SE24804

PATIENT
  Age: 61 Year
  Sex: Female

DRUGS (8)
  1. SEROQUEL [Suspect]
     Indication: ANXIETY
     Route: 048
     Dates: start: 20050218
  2. SEROQUEL [Suspect]
     Indication: AFFECTIVE DISORDER
     Route: 048
     Dates: start: 20050218
  3. SEROQUEL [Suspect]
     Route: 048
     Dates: start: 20050101
  4. SEROQUEL [Suspect]
     Route: 048
     Dates: start: 20050101
  5. SEROQUEL [Suspect]
     Indication: DEPRESSION
     Route: 048
     Dates: start: 20050218
  6. PROZAC [Concomitant]
     Indication: DEPRESSION
  7. SEROQUEL [Suspect]
     Route: 048
     Dates: start: 20050101
  8. KLONOPIN [Concomitant]
     Indication: ANXIETY

REACTIONS (2)
  - STRESS CARDIOMYOPATHY [None]
  - ACUTE MYOCARDIAL INFARCTION [None]
